FAERS Safety Report 11854732 (Version 1)
Quarter: 2015Q4

REPORT INFORMATION
  Report Type: Spontaneous
  Country: IT (occurrence: IT)
  Receive Date: 20151221
  Receipt Date: 20151221
  Transmission Date: 20160305
  Serious: Yes (Other)
  Sender: FDA-Public Use
  Company Number: IT-ASTRAZENECA-2015SF26721

PATIENT
  Age: 27929 Day
  Sex: Male
  Weight: 77 kg

DRUGS (1)
  1. BRILIQUE [Suspect]
     Active Substance: TICAGRELOR
     Indication: PLATELET AGGREGATION ABNORMAL
     Dosage: 90 MG FILM COATED TABLET DAILY
     Route: 048
     Dates: start: 20151210, end: 20151212

REACTIONS (2)
  - Laryngeal oedema [Recovered/Resolved]
  - Tongue oedema [Recovered/Resolved]

NARRATIVE: CASE EVENT DATE: 20151212
